FAERS Safety Report 9254599 (Version 1)
Quarter: 2013Q1

REPORT INFORMATION
  Report Type: Spontaneous
  Country: US (occurrence: None)
  Receive Date: 20121210
  Receipt Date: 20121210
  Transmission Date: 20140127
  Serious: No
  Sender: FDA-Public Use
  Company Number: 1209USA000688

PATIENT
  Sex: Female

DRUGS (2)
  1. ZIOPTAN [Suspect]
     Route: 031
     Dates: start: 20120813, end: 20120823
  2. AMLODIPINE BESYLATE + BENAZEPIRIL HYDROCHLORIDE (AMLODIPINE BESYLATE, BENAZEPRIL HYDEROCHLORIDE) [Concomitant]

REACTIONS (2)
  - Cheilitis [None]
  - Lip swelling [None]
